FAERS Safety Report 6395099-X (Version None)
Quarter: 2009Q4

REPORT INFORMATION
  Report Type: 
  Country: None (occurrence: None)
  Receive Date: 20091009
  Receipt Date: 20091005
  Transmission Date: 20100525
  Serious: Yes (Other)
  Sender: FDA-Public Use
  Company Number: US-BAYER-200915149BCC

PATIENT
  Age: 62 Year
  Sex: Female
  Weight: 91 kg

DRUGS (13)
  1. ASPIRIN [Suspect]
     Indication: DRUG USE FOR UNKNOWN INDICATION
     Dosage: TOTAL DAILY DOSE: 325 MG  UNIT DOSE: 325 MG
     Route: 048
     Dates: start: 20090901
  2. ASPIRIN [Suspect]
     Route: 048
     Dates: start: 20090924
  3. ENOXAPARIN SODIUM [Suspect]
     Indication: CARDIAC DISORDER
     Dosage: TOTAL DAILY DOSE: 160 MG  UNIT DOSE: 80 MG
     Dates: start: 20090918, end: 20090921
  4. ENOXAPARIN SODIUM [Suspect]
     Dosage: TOTAL DAILY DOSE: 160 MG  UNIT DOSE: 80 MG
     Dates: start: 20090923
  5. WARFARIN SODIUM [Suspect]
     Indication: DRUG USE FOR UNKNOWN INDICATION
     Dosage: TOTAL DAILY DOSE: 10 MG  UNIT DOSE: 10 MG
     Dates: start: 20090920, end: 20090901
  6. ASPIRIN [Concomitant]
  7. TRIAMTERENE [Concomitant]
     Indication: HYPERTENSION
  8. SOTALOL [Concomitant]
  9. LISINOPRIL [Concomitant]
     Indication: HYPERTENSION
  10. VITAMIN [Concomitant]
  11. LOVAZA [Concomitant]
     Dosage: TOTAL DAILY DOSE: 100 MG  UNIT DOSE: 100 MG
  12. CALCIUM [Concomitant]
     Indication: ARTHRITIS
  13. UNKNOWN DRUG [Concomitant]
     Indication: ARTHRITIS
     Dosage: INJECTION IN HER KNEES

REACTIONS (4)
  - ABDOMINAL PAIN UPPER [None]
  - BLOOD URINE PRESENT [None]
  - CONTUSION [None]
  - HEADACHE [None]
